FAERS Safety Report 8175714-0 (Version None)
Quarter: 2012Q1

REPORT INFORMATION
  Report Type: 
  Country: None (occurrence: None)
  Receive Date: 20120301
  Receipt Date: 20120220
  Transmission Date: 20120608
  Serious: Yes (Other)
  Sender: FDA-Public Use
  Company Number: US-AMGEN-USASP2012011169

PATIENT
  Age: 74 Year
  Sex: Female

DRUGS (2)
  1. ENBREL [Suspect]
     Indication: PSORIASIS
  2. ENBREL [Suspect]
     Indication: RHEUMATOID ARTHRITIS
     Dosage: 50 MG, QWK
     Dates: start: 20111205

REACTIONS (8)
  - HYPERTENSION [None]
  - ATRIAL FIBRILLATION [None]
  - VOMITING [None]
  - HYPOTENSION [None]
  - PSORIASIS [None]
  - DIZZINESS [None]
  - HYPOKALAEMIA [None]
  - DIARRHOEA [None]
